FAERS Safety Report 9627074 (Version 1)
Quarter: 2013Q4

REPORT INFORMATION
  Report Type: Spontaneous
  Country: DE (occurrence: DE)
  Receive Date: 20131016
  Receipt Date: 20131016
  Transmission Date: 20140711
  Serious: Yes (Life-Threatening, Hospitalization)
  Sender: FDA-Public Use
  Company Number: DE-TEVA-436847GER

PATIENT
  Age: 82 Year
  Sex: Female

DRUGS (1)
  1. HCT [Suspect]
     Indication: HYPERTENSION
     Dosage: 25 MILLIGRAM DAILY;
     Route: 048

REACTIONS (1)
  - Hyponatraemic encephalopathy [Recovered/Resolved]
